FAERS Safety Report 7648870-8 (Version None)
Quarter: 2011Q3

REPORT INFORMATION
  Report Type: 
  Country: None (occurrence: None)
  Receive Date: 20110801
  Receipt Date: 20110720
  Transmission Date: 20111222
  Serious: Yes (Disabling)
  Sender: FDA-Public Use
  Company Number: PHFR2011GB04465

PATIENT
  Age: 55 Year
  Sex: Female

DRUGS (4)
  1. CARBAMAZEPINE [Suspect]
     Indication: HEADACHE
     Dosage: 1 DF, TID
     Route: 048
  2. CARBAMAZEPINE [Suspect]
     Indication: PAIN
     Dosage: 1 DF, TID
     Route: 048
     Dates: start: 20110624, end: 20110625
  3. NAPROXEN [Suspect]
  4. ACETAMINOPHEN [Suspect]

REACTIONS (11)
  - VISUAL IMPAIRMENT [None]
  - NIGHT SWEATS [None]
  - GLOSSODYNIA [None]
  - CONFUSIONAL STATE [None]
  - URINARY RETENTION [None]
  - RASH [None]
  - ABDOMINAL DISCOMFORT [None]
  - PYREXIA [None]
  - DECREASED APPETITE [None]
  - MASS [None]
  - MUSCULAR WEAKNESS [None]
